FAERS Safety Report 7119299-6 (Version None)
Quarter: 2010Q4

REPORT INFORMATION
  Report Type: 
  Country: None (occurrence: None)
  Receive Date: 20101123
  Receipt Date: 20101116
  Transmission Date: 20110411
  Serious: Yes (Disabling)
  Sender: FDA-Public Use
  Company Number: FR-CEPHALON-2010006086

PATIENT

DRUGS (2)
  1. TREANDA [Suspect]
     Route: 042
  2. RITUXIMAB [Suspect]
     Route: 042

REACTIONS (1)
  - HEPATIC FAILURE [None]
